FAERS Safety Report 14465922 (Version 1)
Quarter: 2018Q1

REPORT INFORMATION
  Report Type: Spontaneous
  Country: US (occurrence: US)
  Receive Date: 20180131
  Receipt Date: 20180131
  Transmission Date: 20180509
  Serious: Yes (Other)
  Sender: FDA-Public Use
  Company Number: US-SUN PHARMACEUTICAL INDUSTRIES LTD-2017US-157026

PATIENT
  Age: 67 Year
  Sex: Male

DRUGS (7)
  1. NEBIVOLOL. [Suspect]
     Active Substance: NEBIVOLOL
     Indication: ISCHAEMIA
     Dosage: 10 MG, DAILY
     Route: 048
  2. ISOSORBIDE MONONITRATE. [Suspect]
     Active Substance: ISOSORBIDE MONONITRATE
     Indication: ISCHAEMIA
     Dosage: 120 MG, DAILY
     Route: 048
  3. RANOLAZINE. [Concomitant]
     Active Substance: RANOLAZINE
     Indication: ISCHAEMIA
     Dosage: 1 G, BID
     Route: 048
  4. AMLODIPINE [Suspect]
     Active Substance: AMLODIPINE BESYLATE
     Indication: ISCHAEMIA
     Dosage: 10 MG, BID
     Route: 065
  5. L-ARGININE [Suspect]
     Active Substance: ARGININE
     Indication: ISCHAEMIA
     Dosage: 1 G, BID
     Route: 048
  6. ASPIRIN. [Concomitant]
     Active Substance: ASPIRIN
     Indication: ISCHAEMIA
     Dosage: 325 MG, DAILY
     Route: 048
  7. PRASUGREL. [Concomitant]
     Active Substance: PRASUGREL
     Indication: ISCHAEMIA
     Dosage: 10 MG, DAILY
     Route: 048

REACTIONS (1)
  - Drug ineffective [Unknown]
